FAERS Safety Report 6078339-6 (Version None)
Quarter: 2009Q1

REPORT INFORMATION
  Report Type: 
  Country: None (occurrence: None)
  Receive Date: 20090213
  Receipt Date: 20090205
  Transmission Date: 20090719
  Serious: Yes (Life-Threatening, Hospitalization)
  Sender: FDA-Public Use
  Company Number: US-JNJFOC-20090202754

PATIENT
  Age: 56 Year
  Sex: Female
  Weight: 72 kg

DRUGS (7)
  1. REMICADE [Suspect]
     Route: 042
  2. REMICADE [Suspect]
     Indication: PSORIATIC ARTHROPATHY
     Route: 042
  3. METHOTREXATE [Concomitant]
  4. LITHIUM CARBONATE [Concomitant]
     Indication: BIPOLAR DISORDER
  5. ZYPREXA [Concomitant]
  6. CALAN [Concomitant]
  7. PREDNISONE [Concomitant]

REACTIONS (2)
  - ACUTE PULMONARY HISTOPLASMOSIS [None]
  - THERAPEUTIC AGENT TOXICITY [None]
